FAERS Safety Report 9329051 (Version 1)
Quarter: 2013Q2

REPORT INFORMATION
  Report Type: Spontaneous
  Country: US (occurrence: US)
  Receive Date: 20130604
  Receipt Date: 20130604
  Transmission Date: 20140414
  Serious: No
  Sender: FDA-Public Use
  Company Number: US-SANOFI-AVENTIS-2012SA072572

PATIENT
  Sex: Female

DRUGS (2)
  1. LANTUS SOLOSTAR [Suspect]
     Indication: DIABETES MELLITUS
     Route: 058
     Dates: start: 2011
  2. SOLOSTAR [Suspect]
     Indication: DIABETES MELLITUS
     Dates: start: 2011

REACTIONS (4)
  - Decreased appetite [Not Recovered/Not Resolved]
  - Blood glucose decreased [Not Recovered/Not Resolved]
  - Drug ineffective [Unknown]
  - Expired drug administered [Unknown]
